FAERS Safety Report 9522142 (Version 2)
Quarter: 2013Q3

REPORT INFORMATION
  Report Type: Spontaneous
  Country: US (occurrence: US)
  Receive Date: 20130913
  Receipt Date: 20130913
  Transmission Date: 20140515
  Serious: Yes (Hospitalization)
  Sender: FDA-Public Use
  Company Number: US-PFIZER INC-2013251387

PATIENT
  Age: 66 Year
  Sex: Female
  Weight: 75.74 kg

DRUGS (11)
  1. LYRICA [Suspect]
     Indication: FIBROMYALGIA
     Dosage: 150 MG, 1X/DAY
     Route: 048
     Dates: end: 201309
  2. LYRICA [Suspect]
     Indication: DIABETIC NEUROPATHY
  3. TOPROL-XL [Concomitant]
     Indication: HYPERTENSION
     Dosage: 50 MG, UNK
  4. AMLODIPINE [Concomitant]
     Indication: HYPERTENSION
     Dosage: 10 MG, UNK
  5. AMBIEN [Concomitant]
     Dosage: 10 MG, UNK
  6. PAXIL [Concomitant]
     Dosage: 20 MG, UNK
  7. PRAVASTATIN [Concomitant]
     Indication: BLOOD CHOLESTEROL INCREASED
     Dosage: 40 MG, UNK
  8. NEXIUM [Concomitant]
     Dosage: 40 MG, UNK
  9. HYDROCHLOROTHIAZIDE [Concomitant]
     Dosage: 25 MG, UNK
  10. HYDROCODONE/ACETAMINOPHEN [Concomitant]
     Dosage: 5/500 MG, AS NEEDED
  11. JANUVIA [Concomitant]
     Indication: DIABETES MELLITUS
     Dosage: UNK

REACTIONS (1)
  - Arterial occlusive disease [Recovering/Resolving]
